FAERS Safety Report 8120636-4 (Version None)
Quarter: 2012Q1

REPORT INFORMATION
  Report Type: 
  Country: None (occurrence: None)
  Receive Date: 20120207
  Receipt Date: 20120131
  Transmission Date: 20120608
  Serious: Yes (Hospitalization)
  Sender: FDA-Public Use
  Company Number: NL-ASTRAZENECA-2012SE07003

PATIENT
  Age: 26200 Day
  Sex: Female
  Weight: 92 kg

DRUGS (2)
  1. ZOMETA [Concomitant]
     Dosage: 1 TIMES PER 6 MONTHS
     Dates: start: 20110202
  2. FULVESTRANT [Suspect]
     Indication: BREAST CANCER METASTATIC
     Route: 030
     Dates: start: 20111010

REACTIONS (1)
  - PULMONARY EMBOLISM [None]
